FAERS Safety Report 5669442-0 (Version None)
Quarter: 2008Q1

REPORT INFORMATION
  Report Type: 
  Country: None (occurrence: None)
  Receive Date: 20080317
  Receipt Date: 20080307
  Transmission Date: 20080703
  Serious: Yes (Other)
  Sender: FDA-Public Use
  Company Number: B0450319B

PATIENT
  Sex: Female

DRUGS (3)
  1. EPIVIR [Suspect]
     Indication: HIV INFECTION
     Dosage: 300MG PER DAY
     Route: 048
     Dates: start: 20030528
  2. VIRAMUNE [Suspect]
     Indication: HIV INFECTION
     Dosage: 400MG PER DAY
     Route: 048
     Dates: start: 20030611
  3. ZERIT [Suspect]
     Indication: HIV INFECTION
     Dosage: 80MG PER DAY
     Route: 048
     Dates: start: 20030528

REACTIONS (1)
  - ABORTION SPONTANEOUS [None]
